FAERS Safety Report 9741926 (Version 1)
Quarter: 2013Q4

REPORT INFORMATION
  Report Type: Spontaneous
  Country: US (occurrence: US)
  Receive Date: 20131210
  Receipt Date: 20131210
  Transmission Date: 20140711
  Serious: Yes (Other)
  Sender: FDA-Public Use
  Company Number: US-JNJFOC-20131200726

PATIENT
  Sex: Female
  Weight: 74.84 kg

DRUGS (16)
  1. REMICADE [Suspect]
     Indication: PSORIASIS
     Route: 042
     Dates: start: 201004, end: 2011
  2. BENADRYL [Concomitant]
     Indication: PREMEDICATION
     Route: 042
  3. STEROIDS NOS [Concomitant]
     Indication: PREMEDICATION
     Route: 065
  4. WELLBUTRIN [Concomitant]
     Indication: DEPRESSION
     Dosage: 100 MG TABLET
     Route: 048
  5. ZOLOFT [Concomitant]
     Indication: DEPRESSION
     Route: 048
  6. LISINOPRIL [Concomitant]
     Indication: BLOOD PRESSURE
     Route: 048
  7. METOPROLOL [Concomitant]
     Indication: BLOOD PRESSURE
     Route: 048
  8. GABAPENTIN [Concomitant]
     Indication: NERVE INJURY
     Dosage: 600 MG TABLET
     Route: 048
  9. TYLENOL 4 [Concomitant]
     Indication: PAIN
     Dosage: 300/60 MG
  10. IBUPROFEN [Concomitant]
     Indication: PAIN
     Route: 048
  11. BENADRYL [Concomitant]
     Dosage: DOSE: 50 MG TO 75 MG
     Route: 048
  12. TRAZODONE [Concomitant]
     Route: 048
  13. SUMATRIPTAN SUCCINATE [Concomitant]
     Indication: MIGRAINE
     Route: 048
  14. VALIUM [Concomitant]
     Route: 048
  15. CLOBETASOL PROPIONATE [Concomitant]
     Indication: PSORIASIS
     Route: 061
  16. DESONIDE [Concomitant]
     Indication: PSORIASIS
     Route: 061

REACTIONS (3)
  - Intervertebral disc degeneration [Not Recovered/Not Resolved]
  - Body height decreased [Not Recovered/Not Resolved]
  - Hypersensitivity [Unknown]
